FAERS Safety Report 8171960-0 (Version None)
Quarter: 2012Q1

REPORT INFORMATION
  Report Type: 
  Country: None (occurrence: None)
  Receive Date: 20120228
  Receipt Date: 20120220
  Transmission Date: 20120608
  Serious: Yes (Death)
  Sender: FDA-Public Use
  Company Number: BE-ROCHE-1042059

PATIENT
  Sex: Female
  Weight: 83 kg

DRUGS (7)
  1. BUMETANIDE [Concomitant]
  2. FRAXODI [Concomitant]
  3. LOSFERRON [Concomitant]
  4. LANOXIN [Concomitant]
  5. LIPITOR [Concomitant]
  6. XELODA [Suspect]
     Indication: COLORECTAL CANCER
     Route: 048
     Dates: start: 20111201, end: 20120116
  7. ZOPICLONE [Concomitant]

REACTIONS (1)
  - POSTICTAL STATE [None]
